FAERS Safety Report 24468663 (Version 4)
Quarter: 2025Q1

REPORT INFORMATION
  Report Type: Report from Study
  Country: CA (occurrence: CA)
  Receive Date: 20241018
  Receipt Date: 20250307
  Transmission Date: 20250409
  Serious: Yes (Hospitalization, Other)
  Sender: CSL BEHRING
  Company Number: CA-BEH-2024182242

PATIENT
  Age: 60 Year
  Sex: Female
  Weight: 65.8 kg

DRUGS (1)
  1. HIZENTRA [Suspect]
     Active Substance: HUMAN IMMUNOGLOBULIN G
     Indication: Primary immunodeficiency syndrome
     Dosage: 12 G, QW
     Route: 058
     Dates: start: 20140707

REACTIONS (14)
  - Dyspnoea [Unknown]
  - Inflammation [Unknown]
  - Abdominal pain [Unknown]
  - Rhinalgia [Unknown]
  - White blood cell count increased [Unknown]
  - Scleritis [Unknown]
  - Scleritis [Unknown]
  - Urinary tract infection [Unknown]
  - Polychondritis [Unknown]
  - Nervous system disorder [Unknown]
  - Fatigue [Unknown]
  - Headache [Unknown]
  - Confusional state [Unknown]
  - Amnesia [Unknown]
